FAERS Safety Report 6264241 (Version 2)
Quarter: 2017Q3

REPORT INFORMATION
  Report Type: Spontaneous
  Country: US (occurrence: US)
  Receive Date: 20070319
  Receipt Date: 20170831
  Transmission Date: 20171128
  Serious: Yes (Hospitalization)
  Sender: FDA-Public Use
  Company Number: US-ELI_LILLY_AND_COMPANY-US_0508121379

PATIENT
  Age: 49 Year

DRUGS (2)
  1. HUMULIN R [Suspect]
     Active Substance: INSULIN HUMAN
     Indication: TYPE 1 DIABETES MELLITUS
     Dosage: UNK, UNKNOWN
     Route: 065
  2. ZYPREXA [Suspect]
     Active Substance: OLANZAPINE
     Indication: BIPOLAR DISORDER
     Dosage: UNK, UNKNOWN
     Route: 065
     Dates: start: 20030917

REACTIONS (5)
  - Pancreatitis [Unknown]
  - Neuropathy peripheral [Not Recovered/Not Resolved]
  - Type 1 diabetes mellitus [Unknown]
  - Renal failure [Unknown]
  - Ketoacidosis [Unknown]

NARRATIVE: CASE EVENT DATE: 200310
